FAERS Safety Report 21306637 (Version 1)
Quarter: 2022Q3

REPORT INFORMATION
  Report Type: Spontaneous
  Country: CA (occurrence: CA)
  Receive Date: 20220908
  Receipt Date: 20220908
  Transmission Date: 20221026
  Serious: Yes (Hospitalization, Disabling)
  Sender: FDA-Public Use
  Company Number: CA-JNJFOC-20220901533

PATIENT
  Sex: Female

DRUGS (2)
  1. RISPERDAL [Suspect]
     Active Substance: RISPERIDONE
     Indication: Antipsychotic therapy
     Route: 065
  2. INVEGA [Suspect]
     Active Substance: PALIPERIDONE
     Indication: Antipsychotic therapy
     Route: 048

REACTIONS (5)
  - Amputation [Unknown]
  - Bed bug infestation [Unknown]
  - Deep vein thrombosis [Unknown]
  - Dyspnoea [Unknown]
  - Peripheral swelling [Unknown]
